FAERS Safety Report 24338999 (Version 1)
Quarter: 2024Q3

REPORT INFORMATION
  Report Type: Spontaneous
  Country: US (occurrence: US)
  Receive Date: 20240919
  Receipt Date: 20240919
  Transmission Date: 20241017
  Serious: No
  Sender: Haleon PLC
  Company Number: US-HALEON-2196729

PATIENT
  Age: 73 Year
  Sex: Female

DRUGS (1)
  1. FLONASE ALLERGY RELIEF [Suspect]
     Active Substance: FLUTICASONE PROPIONATE
     Indication: Sneezing
     Dosage: EXPDATE:20260630
     Dates: start: 20240911, end: 20240912

REACTIONS (2)
  - Perfume sensitivity [Recovering/Resolving]
  - Condition aggravated [Recovering/Resolving]
